FAERS Safety Report 6430171-7 (Version None)
Quarter: 2009Q4

REPORT INFORMATION
  Report Type: 
  Country: None (occurrence: None)
  Receive Date: 20091106
  Receipt Date: 20091028
  Transmission Date: 20100525
  Serious: Yes (Death)
  Sender: FDA-Public Use
  Company Number: PHEH2009US08977

PATIENT
  Sex: Male
  Weight: 73.469 kg

DRUGS (8)
  1. GLEEVEC [Suspect]
     Indication: CHRONIC MYELOID LEUKAEMIA
     Dosage: 400 MG, QD
     Route: 048
     Dates: start: 20060301, end: 20090601
  2. FLOMAX [Concomitant]
  3. PROSCAR [Concomitant]
  4. CASODEX [Concomitant]
  5. PROVENTIL-HFA [Concomitant]
  6. SINGULAIR [Concomitant]
  7. SPIRIVA [Concomitant]
  8. SYMBICORT [Concomitant]

REACTIONS (2)
  - LUNG NEOPLASM MALIGNANT [None]
  - SEPSIS [None]
